FAERS Safety Report 6844096-6 (Version None)
Quarter: 2010Q3

REPORT INFORMATION
  Report Type: 
  Country: None (occurrence: None)
  Receive Date: 20100714
  Receipt Date: 20100714
  Transmission Date: 20110219
  Serious: Yes (Other)
  Sender: FDA-Public Use
  Company Number: None

PATIENT
  Age: 23 Year
  Sex: Male
  Weight: 81.6475 kg

DRUGS (2)
  1. FLUVOXAMINE MALEATE [Suspect]
     Indication: ANXIETY
     Dosage: 75 MG. 3 TIMES DAILY
     Dates: start: 20100515, end: 20100713
  2. FLUVOXAMINE MALEATE [Suspect]
     Indication: DEPRESSION
     Dosage: 75 MG. 3 TIMES DAILY
     Dates: start: 20100515, end: 20100713

REACTIONS (5)
  - ABNORMAL BEHAVIOUR [None]
  - ANXIETY [None]
  - DISTURBANCE IN ATTENTION [None]
  - HOSTILITY [None]
  - PERSONALITY DISORDER [None]
